FAERS Safety Report 21549356 (Version 1)
Quarter: 2022Q4

REPORT INFORMATION
  Report Type: Spontaneous
  Country: US (occurrence: US)
  Receive Date: 20221103
  Receipt Date: 20221103
  Transmission Date: 20230113
  Serious: No
  Sender: FDA-Public Use
  Company Number: US-PFIZER INC-202201271657

PATIENT
  Age: 51 Year
  Sex: Male
  Weight: 93.89 kg

DRUGS (2)
  1. CABERGOLINE [Suspect]
     Active Substance: CABERGOLINE
     Indication: Neoplasm
     Dosage: 2 PILLS ON MONDAY AND 2 PILLS ON FRIDAY
  2. CABERGOLINE [Suspect]
     Active Substance: CABERGOLINE
     Indication: Hormone level abnormal

REACTIONS (1)
  - Drug ineffective [Unknown]
